FAERS Safety Report 6755096-9 (Version None)
Quarter: 2010Q2

REPORT INFORMATION
  Report Type: 
  Country: None (occurrence: None)
  Receive Date: 20100604
  Receipt Date: 20100527
  Transmission Date: 20101027
  Serious: Yes (Hospitalization)
  Sender: FDA-Public Use
  Company Number: US-BIOGENIDEC-2010BI017549

PATIENT
  Age: 25 Year
  Sex: Female
  Weight: 127 kg

DRUGS (5)
  1. AVONEX [Suspect]
     Indication: MULTIPLE SCLEROSIS
     Route: 030
     Dates: start: 20060526, end: 20071011
  2. AVONEX [Suspect]
     Route: 030
     Dates: start: 20080701
  3. LYRICA [Concomitant]
     Indication: PAIN
  4. ALPRAZOLAM [Concomitant]
     Indication: GENERAL SYMPTOM
  5. LORCET-HD [Concomitant]
     Indication: PAIN

REACTIONS (3)
  - DEPRESSION [None]
  - HYPERGLYCAEMIA [None]
  - MULTIPLE SCLEROSIS RELAPSE [None]
